FAERS Safety Report 20096667 (Version 1)
Quarter: 2021Q4

REPORT INFORMATION
  Report Type: Spontaneous
  Country: US (occurrence: None)
  Receive Date: 20211122
  Receipt Date: 20211122
  Transmission Date: 20220303
  Serious: Yes (Other)
  Sender: FDA-Public Use
  Company Number: US-ROCHE-2956513

PATIENT

DRUGS (3)
  1. HERCEPTIN [Suspect]
     Active Substance: TRASTUZUMAB
     Indication: Breast cancer
     Dosage: NO
     Route: 041
     Dates: start: 2018, end: 2018
  2. HERCEPTIN [Suspect]
     Active Substance: TRASTUZUMAB
     Dosage: YES
     Route: 041
     Dates: start: 20210719
  3. PERJETA [Suspect]
     Active Substance: PERTUZUMAB
     Indication: Breast cancer
     Dosage: YES
     Route: 065
     Dates: start: 20210719

REACTIONS (18)
  - White blood cell count decreased [Not Recovered/Not Resolved]
  - Bone density abnormal [Not Recovered/Not Resolved]
  - Mass [Not Recovered/Not Resolved]
  - Breast cancer metastatic [Not Recovered/Not Resolved]
  - Diarrhoea [Not Recovered/Not Resolved]
  - Ear pain [Unknown]
  - Discomfort [Unknown]
  - Sinusitis [Unknown]
  - Vaginal infection [Unknown]
  - Endocrine disorder [Unknown]
  - Urethral prolapse [Unknown]
  - Cachexia [Unknown]
  - Weight decreased [Not Recovered/Not Resolved]
  - Amnesia [Unknown]
  - Epiretinal membrane [Unknown]
  - Vision blurred [Unknown]
  - Dry eye [Unknown]
  - Fatigue [Not Recovered/Not Resolved]

NARRATIVE: CASE EVENT DATE: 20190101
